FAERS Safety Report 9845792 (Version 1)
Quarter: 2014Q1

REPORT INFORMATION
  Report Type: Spontaneous
  Country: US (occurrence: None)
  Receive Date: 20140123
  Receipt Date: 20140123
  Transmission Date: 20141002
  Serious: Yes (Other)
  Sender: FDA-Public Use
  Company Number: 2010S1000488

PATIENT
  Age: 56 Year
  Sex: Male
  Weight: 107.5 kg

DRUGS (5)
  1. FLEET PHOSPHO-SODA [Suspect]
     Indication: COLONOSCOPY
     Route: 048
  2. CELEBREX [Concomitant]
  3. NORVASC [Concomitant]
  4. DIOVAN HCT [Concomitant]
  5. VIAGRA [Concomitant]

REACTIONS (3)
  - Renal failure chronic [None]
  - Hepatitis C [None]
  - Renal transplant [None]
